FAERS Safety Report 9468710 (Version 2)
Quarter: 2013Q3

REPORT INFORMATION
  Report Type: Spontaneous
  Country: JP (occurrence: JP)
  Receive Date: 20130821
  Receipt Date: 20130913
  Transmission Date: 20140515
  Serious: Yes (Other)
  Sender: FDA-Public Use
  Company Number: JP-JNJFOC-20130810648

PATIENT
  Sex: Female

DRUGS (2)
  1. TRAMCET [Suspect]
     Indication: PRODUCT USED FOR UNKNOWN INDICATION
     Dosage: 2 PER 1 DAY
     Route: 048
  2. TRAMCET [Suspect]
     Indication: PRODUCT USED FOR UNKNOWN INDICATION
     Dosage: 3 PER 1 DAY
     Route: 048

REACTIONS (1)
  - White blood cell count decreased [Recovering/Resolving]
